FAERS Safety Report 4427910-3 (Version None)
Quarter: 2004Q3

REPORT INFORMATION
  Report Type: 
  Country: None (occurrence: None)
  Receive Date: 20040813
  Receipt Date: 20040803
  Transmission Date: 20050211
  Serious: Yes (Other)
  Sender: FDA-Public Use
  Company Number: 2004052492

PATIENT
  Age: 87 Year
  Sex: Female
  Weight: 46.2669 kg

DRUGS (2)
  1. NORVASC [Suspect]
     Indication: HYPERTENSION
     Dosage: 2.5 MG (2.5 MG, DAILY INTERVAL:  EVERY DAY), ORAL
     Route: 048
     Dates: start: 20040701
  2. SYNTHROID [Concomitant]

REACTIONS (7)
  - BALANCE DISORDER [None]
  - CONFUSIONAL STATE [None]
  - DISEASE RECURRENCE [None]
  - HEARING IMPAIRED [None]
  - HYPERTENSION [None]
  - TINNITUS [None]
  - VISION BLURRED [None]
